FAERS Safety Report 6700791-0 (Version None)
Quarter: 2010Q2

REPORT INFORMATION
  Report Type: 
  Country: None (occurrence: None)
  Receive Date: 20100428
  Receipt Date: 20100422
  Transmission Date: 20101027
  Serious: Yes (Hospitalization, Other)
  Sender: FDA-Public Use
  Company Number: US-ELI_LILLY_AND_COMPANY-US201004006683

PATIENT
  Sex: Female

DRUGS (3)
  1. HUMALOG [Suspect]
     Indication: DIABETES MELLITUS
     Dosage: 20 U, 3/D
     Dates: start: 20090101
  2. HUMALOG [Suspect]
     Dosage: 20 U, 3/D
     Dates: start: 20090101
  3. LANTUS [Concomitant]
     Dosage: 90 U, EACH EVENING

REACTIONS (9)
  - BLOOD GLUCOSE DECREASED [None]
  - BLOOD GLUCOSE INCREASED [None]
  - CYSTITIS [None]
  - DIZZINESS [None]
  - FALL [None]
  - HYPERTENSION [None]
  - MALAISE [None]
  - POSTMENOPAUSAL HAEMORRHAGE [None]
  - RENAL IMPAIRMENT [None]
